FAERS Safety Report 7781887-1 (Version None)
Quarter: 2011Q3

REPORT INFORMATION
  Report Type: 
  Country: None (occurrence: None)
  Receive Date: 20110927
  Receipt Date: 20110920
  Transmission Date: 20111222
  Serious: Yes (Hospitalization)
  Sender: FDA-Public Use
  Company Number: JP-ASTRAZENECA-2011SE56526

PATIENT
  Age: 8240 Day
  Sex: Female
  Weight: 40 kg

DRUGS (7)
  1. IMURAN [Concomitant]
     Indication: COLITIS ULCERATIVE
     Route: 048
     Dates: start: 20040801
  2. PREDNISOLONE [Concomitant]
     Indication: COLITIS ULCERATIVE
     Route: 048
  3. ASACOL [Suspect]
     Indication: COLITIS ULCERATIVE
     Route: 048
     Dates: start: 20100601, end: 20110804
  4. CEFAZOLIN SODIUM [Concomitant]
     Indication: COLITIS ULCERATIVE
     Route: 048
  5. OMEPRAZOLE [Suspect]
     Indication: COLITIS ULCERATIVE
     Route: 048
     Dates: start: 20060401, end: 20110804
  6. FERROUS CITRATE [Concomitant]
     Indication: COLITIS ULCERATIVE
     Route: 048
  7. DEPAS [Suspect]
     Indication: DEPRESSION
     Route: 048
     Dates: start: 20100301, end: 20110804

REACTIONS (4)
  - COUGH [None]
  - LUNG DISORDER [None]
  - MALAISE [None]
  - PYREXIA [None]
